FAERS Safety Report 10793142 (Version 1)
Quarter: 2015Q1

REPORT INFORMATION
  Report Type: Spontaneous
  Country: JP (occurrence: JP)
  Receive Date: 20150213
  Receipt Date: 20150213
  Transmission Date: 20150721
  Serious: Yes (Other)
  Sender: FDA-Public Use
  Company Number: JP-ACTAVIS-2015-01596

PATIENT
  Age: 78 Year
  Sex: Male

DRUGS (1)
  1. RANITIDINE (UNKNOWN) [Suspect]
     Active Substance: RANITIDINE HYDROCHLORIDE
     Indication: GASTRIC ULCER
     Dosage: 40 MG, DAILY
     Route: 065

REACTIONS (1)
  - Dysbacteriosis [Unknown]
